FAERS Safety Report 9254101 (Version 1)
Quarter: 2013Q2

REPORT INFORMATION
  Report Type: Spontaneous
  Country: US (occurrence: None)
  Receive Date: 20130417
  Receipt Date: 20130417
  Transmission Date: 20140414
  Serious: Yes (Other)
  Sender: FDA-Public Use
  Company Number: 2013PROUSA02731

PATIENT
  Age: 70 Year
  Sex: Male
  Weight: 113.4 kg

DRUGS (12)
  1. PROVENGE (SIPULEUCEL-T) SUSPENSION, 250ML [Suspect]
     Indication: PROSTATE CANCER METASTATIC
     Dosage: SINGLE
     Route: 042
     Dates: start: 20111118, end: 20111118
  2. ASPIRIN (ACETYLSALICYLIC ACID) [Concomitant]
  3. FLUTAMIDE (FLUTAMIDE) [Concomitant]
  4. LUPRON (LEUPRORELIN ACETATE) [Concomitant]
  5. ZOMETA (ZOLEDRONIC ACID) [Concomitant]
  6. METOPROLOL TARTRATE (METOPROLOL TARTRATE) [Concomitant]
  7. METFORMIN HYDROCHLORIDE (METFORMIN HYDROCHLORIDE) [Concomitant]
  8. MULTIVIAMIN (VITAMINS NOS) [Concomitant]
  9. CRESTOR (ROSUVASTATIN CALCIUM) [Concomitant]
  10. HYDROCHLOROTHIAZIDE (HYDROCHLOROTHIAZIDE) [Concomitant]
  11. SELENIUM (SELENIUM) [Concomitant]
  12. DIOVAN (VALSARTAN) [Concomitant]

REACTIONS (5)
  - Pulmonary embolism [None]
  - Deep vein thrombosis [None]
  - Blood creatinine increased [None]
  - Prostate cancer metastatic [None]
  - Prostate cancer [None]
